FAERS Safety Report 10079298 (Version 1)
Quarter: 2014Q2

REPORT INFORMATION
  Report Type: Spontaneous
  Country: US (occurrence: None)
  Receive Date: 20140414
  Receipt Date: 20140414
  Transmission Date: 20141212
  Serious: Yes (Other)
  Sender: FDA-Public Use
  Company Number: None

PATIENT
  Age: 45 Year
  Sex: Male
  Weight: 83.92 kg

DRUGS (2)
  1. TRAMADOL [Suspect]
     Indication: PAIN
     Dosage: 2 PER DAY
     Route: 048
  2. ASPARTAME [Suspect]
     Route: 048

REACTIONS (4)
  - Joint injury [None]
  - Somnolence [None]
  - Migraine [None]
  - Photophobia [None]
